FAERS Safety Report 21771175 (Version 1)
Quarter: 2022Q4

REPORT INFORMATION
  Report Type: Spontaneous
  Country: AU (occurrence: AU)
  Receive Date: 20221223
  Receipt Date: 20221223
  Transmission Date: 20230113
  Serious: Yes (Other)
  Sender: FDA-Public Use
  Company Number: AU-BAXTER-2022BAX031021

PATIENT
  Sex: Male

DRUGS (18)
  1. DOXORUBICIN [Suspect]
     Active Substance: DOXORUBICIN
     Indication: T-cell prolymphocytic leukaemia
     Dosage: RCHOP, CYCLE 6
     Route: 065
     Dates: start: 2016
  2. DOXORUBICIN [Suspect]
     Active Substance: DOXORUBICIN
     Indication: Mantle cell lymphoma
  3. CYCLOPHOSPHAMIDE [Suspect]
     Active Substance: CYCLOPHOSPHAMIDE
     Indication: T-cell prolymphocytic leukaemia
     Dosage: RCHOP, CYCLE 6
     Route: 065
     Dates: start: 2016
  4. CYCLOPHOSPHAMIDE [Suspect]
     Active Substance: CYCLOPHOSPHAMIDE
     Indication: Mantle cell lymphoma
     Dosage: CVP, CYCLE 6
     Route: 065
  5. RITUXIMAB [Suspect]
     Active Substance: RITUXIMAB
     Indication: T-cell prolymphocytic leukaemia
     Dosage: RCHOP, CYCLE 6
     Route: 065
     Dates: start: 2016
  6. RITUXIMAB [Suspect]
     Active Substance: RITUXIMAB
     Indication: Mantle cell lymphoma
  7. PREDNISONE [Suspect]
     Active Substance: PREDNISONE
     Indication: T-cell prolymphocytic leukaemia
     Dosage: RCHOP, CYCLE 6
     Route: 065
     Dates: start: 2016
  8. PREDNISONE [Suspect]
     Active Substance: PREDNISONE
     Indication: Mantle cell lymphoma
     Dosage: CVP, CYCLE 6
     Route: 065
  9. VINCRISTINE [Suspect]
     Active Substance: VINCRISTINE
     Indication: T-cell prolymphocytic leukaemia
     Dosage: RCHOP, CYCLE 6
     Route: 065
     Dates: start: 2016
  10. VINCRISTINE [Suspect]
     Active Substance: VINCRISTINE
     Indication: Mantle cell lymphoma
     Dosage: CVP, CYCLE 6
     Route: 065
  11. DEXAMETHASONE [Suspect]
     Active Substance: DEXAMETHASONE
     Indication: T-cell prolymphocytic leukaemia
     Dosage: DHAC, CYCLE 6
     Route: 065
     Dates: start: 2016
  12. DEXAMETHASONE [Suspect]
     Active Substance: DEXAMETHASONE
     Indication: Mantle cell lymphoma
  13. CYTARABINE [Suspect]
     Active Substance: CYTARABINE
     Indication: T-cell prolymphocytic leukaemia
     Dosage: DHAC, CYCLE 6
     Route: 065
     Dates: start: 2016
  14. CYTARABINE [Suspect]
     Active Substance: CYTARABINE
     Indication: Mantle cell lymphoma
  15. CARBOPLATIN [Suspect]
     Active Substance: CARBOPLATIN
     Indication: T-cell prolymphocytic leukaemia
     Dosage: DHAC, CYCLE 6
     Route: 065
     Dates: start: 2016
  16. IBRUTINIB [Suspect]
     Active Substance: IBRUTINIB
     Indication: T-cell prolymphocytic leukaemia
     Dosage: UNK
     Route: 065
  17. IBRUTINIB [Suspect]
     Active Substance: IBRUTINIB
     Indication: Leukaemia recurrent
  18. ALEMTUZUMAB [Suspect]
     Active Substance: ALEMTUZUMAB
     Indication: T-cell prolymphocytic leukaemia
     Dosage: UNK
     Route: 065
     Dates: start: 2014

REACTIONS (8)
  - T-cell prolymphocytic leukaemia [Recovered/Resolved]
  - Leukaemia recurrent [Recovered/Resolved]
  - T-cell prolymphocytic leukaemia [Unknown]
  - Leukaemia recurrent [Unknown]
  - Mantle cell lymphoma [Recovered/Resolved]
  - Therapy partial responder [Unknown]
  - Skin lesion [Unknown]
  - Anaemia [Unknown]
